FAERS Safety Report 15065360 (Version 1)
Quarter: 2018Q2

REPORT INFORMATION
  Report Type: Other
  Country: IT (occurrence: IT)
  Receive Date: 20180626
  Receipt Date: 20180626
  Transmission Date: 20180711
  Serious: Yes (Other)
  Sender: FDA-Public Use
  Company Number: IT-ACTELION-A-CH2018-173974

PATIENT
  Age: 25 Year
  Sex: Female

DRUGS (1)
  1. MIGLUSTAT. [Suspect]
     Active Substance: MIGLUSTAT
     Indication: NIEMANN-PICK DISEASE
     Dosage: 600 MG, QD
     Route: 048

REACTIONS (14)
  - Muscle spasticity [Unknown]
  - Visual evoked potentials abnormal [Unknown]
  - Anger [Unknown]
  - Confabulation [Unknown]
  - Ataxia [Unknown]
  - Gaze palsy [Unknown]
  - Mental disorder [Unknown]
  - Treatment noncompliance [Unknown]
  - Dementia [Unknown]
  - Concomitant disease aggravated [Unknown]
  - Hallucinations, mixed [Unknown]
  - Cognitive disorder [Unknown]
  - Intentional self-injury [Unknown]
  - Motor dysfunction [Unknown]
